FAERS Safety Report 8848538 (Version 5)
Quarter: 2013Q1

REPORT INFORMATION
  Report Type: Report from Study
  Country: IT (occurrence: IT)
  Receive Date: 20121018
  Receipt Date: 20130206
  Transmission Date: 20140127
  Serious: Yes (Hospitalization)
  Sender: FDA-Public Use
  Company Number: IT-ROCHE-1060562

PATIENT
  Age: 57 Year
  Sex: Male
  Weight: 96 kg

DRUGS (7)
  1. RIBAVIRIN [Suspect]
     Indication: CHRONIC HEPATITIS C
     Route: 048
     Dates: start: 20120116, end: 20120910
  2. PEG-INTERFERON ALFA 2A [Suspect]
     Indication: CHRONIC HEPATITIS C
     Route: 058
     Dates: start: 20120116, end: 20120910
  3. SERTRALINE [Concomitant]
     Indication: DEPRESSION
     Route: 048
     Dates: start: 20120522, end: 20121031
  4. OMEPRAZOLE [Concomitant]
     Route: 065
     Dates: start: 20120920, end: 20121031
  5. FOLIC ACID [Concomitant]
     Route: 048
     Dates: start: 20120116
  6. CIPROFLOXACIN [Concomitant]
     Route: 065
  7. PAMIDRONATE [Concomitant]
     Dosage: 60 MG IN 500 CC OF SALINE SOLUTION
     Route: 065

REACTIONS (5)
  - Urinary tract infection [Recovered/Resolved]
  - Spondylitis [Recovered/Resolved]
  - Arthralgia [Recovering/Resolving]
  - Oropharyngeal pain [Recovered/Resolved]
  - Dysuria [Recovered/Resolved]
